FAERS Safety Report 6537354-6 (Version None)
Quarter: 2010Q1

REPORT INFORMATION
  Report Type: 
  Country: None (occurrence: None)
  Receive Date: 20100114
  Receipt Date: 20100105
  Transmission Date: 20100710
  Serious: Yes (Death)
  Sender: FDA-Public Use
  Company Number: JP-BRISTOL-MYERS SQUIBB COMPANY-14902894

PATIENT
  Age: 38 Year
  Sex: Male
  Weight: 59 kg

DRUGS (2)
  1. ABILIFY [Suspect]
     Indication: SCHIZOPHRENIA
     Dosage: 27NOV-01DEC09:6MG TID (5DAYS),02DEC-10DEC09:30MG/DAILY DOSE (9 DAYS)
     Route: 048
     Dates: start: 20091127, end: 20091210
  2. SEROQUEL [Suspect]
     Indication: SCHIZOPHRENIA
     Dosage: STRENGTH-25MG 18AUG-2SEP09:25MG BID (16DAYS),3-16SEP09:100 MG/D(14D),17SEP-10DEC09:50MG TID (85D)
     Route: 048
     Dates: start: 20090818, end: 20091210

REACTIONS (17)
  - ASPHYXIA [None]
  - ASPIRATION [None]
  - BRAIN OEDEMA [None]
  - CARDIO-RESPIRATORY ARREST [None]
  - CONVULSION [None]
  - CONVULSIVE THRESHOLD LOWERED [None]
  - DRUG INTERACTION [None]
  - HALLUCINATION, AUDITORY [None]
  - HYPONATRAEMIA [None]
  - INSOMNIA [None]
  - MUSCLE RIGIDITY [None]
  - POLYDIPSIA [None]
  - RESTLESSNESS [None]
  - SCREAMING [None]
  - UNRESPONSIVE TO STIMULI [None]
  - VOMITING [None]
  - WATER INTOXICATION [None]
